FAERS Safety Report 23829851 (Version 1)
Quarter: 2024Q2

REPORT INFORMATION
  Report Type: Spontaneous
  Country: JP (occurrence: JP)
  Receive Date: 20240508
  Receipt Date: 20240508
  Transmission Date: 20240716
  Serious: Yes (Hospitalization, Other)
  Sender: FDA-Public Use
  Company Number: JP-ASTELLAS-2023JP010396

PATIENT
  Age: 70 Year
  Sex: Female

DRUGS (8)
  1. TACROLIMUS [Interacting]
     Active Substance: TACROLIMUS
     Indication: Immunosuppressant drug therapy
     Dosage: 5 MG/DAY, UNKNOWN FREQ.
     Route: 048
  2. TACROLIMUS [Interacting]
     Active Substance: TACROLIMUS
     Dosage: 2 MG/DAY, UNKNOWN FREQ.
     Route: 048
  3. TACROLIMUS [Interacting]
     Active Substance: TACROLIMUS
     Dosage: 5 MG/DAY, UNKNOWN FREQ.
     Route: 048
  4. TACROLIMUS [Interacting]
     Active Substance: TACROLIMUS
     Dosage: 5 MG/DAY, UNKNOWN FREQ.
     Route: 048
  5. NIRMATRELVIR\RITONAVIR [Interacting]
     Active Substance: NIRMATRELVIR\RITONAVIR
     Indication: COVID-19
     Dosage: UNK UNK, UNKNOWN FREQ.
     Route: 048
  6. PREDNISOLONE [Concomitant]
     Active Substance: PREDNISOLONE
     Indication: Immunosuppressant drug therapy
     Dosage: UNK UNK, UNKNOWN FREQ.
     Route: 048
  7. MYCOPHENOLATE MOFETIL [Concomitant]
     Active Substance: MYCOPHENOLATE MOFETIL
     Indication: Immunosuppressant drug therapy
     Dosage: UNK UNK, UNKNOWN FREQ.
     Route: 048
  8. REMDESIVIR [Concomitant]
     Active Substance: REMDESIVIR
     Indication: COVID-19
     Dosage: UNK UNK, UNKNOWN FREQ.
     Route: 042

REACTIONS (5)
  - COVID-19 [Recovering/Resolving]
  - Acute kidney injury [Recovering/Resolving]
  - Altered state of consciousness [Recovering/Resolving]
  - Immunosuppressant drug level increased [Recovering/Resolving]
  - Drug interaction [Unknown]
